FAERS Safety Report 14107213 (Version 7)
Quarter: 2020Q4

REPORT INFORMATION
  Report Type: Spontaneous
  Country: US (occurrence: US)
  Receive Date: 20171019
  Receipt Date: 20201126
  Transmission Date: 20210113
  Serious: No
  Sender: FDA-Public Use
  Company Number: US-PFIZER INC-2017351093

PATIENT
  Age: 81 Year
  Sex: Female

DRUGS (3)
  1. EUCRISA [Suspect]
     Active Substance: CRISABOROLE
     Indication: DERMATITIS
  2. EUCRISA [Suspect]
     Active Substance: CRISABOROLE
     Indication: RASH
     Dosage: UNK
     Route: 061
  3. EUCRISA [Suspect]
     Active Substance: CRISABOROLE
     Indication: DERMATITIS ATOPIC
     Dosage: APPLY TO AFFECTED AREAS TWICE DAILY AS NEEDED
     Route: 061
     Dates: start: 20170826, end: 20171016

REACTIONS (4)
  - Drug ineffective [Unknown]
  - Dry skin [Unknown]
  - Application site pain [Recovered/Resolved]
  - Eye discharge [Unknown]
